FAERS Safety Report 9746255 (Version 2)
Quarter: 2014Q1

REPORT INFORMATION
  Report Type: Spontaneous
  Country: US (occurrence: US)
  Receive Date: 20131211
  Receipt Date: 20140212
  Transmission Date: 20141002
  Serious: No
  Sender: FDA-Public Use
  Company Number: US-009507513-1312USA002218

PATIENT
  Age: 17 Year
  Sex: Female
  Weight: 112.93 kg

DRUGS (4)
  1. NEXPLANON [Suspect]
     Indication: CONTRACEPTION
     Dosage: UNK
     Route: 059
     Dates: start: 20131029, end: 20131117
  2. NEXPLANON [Suspect]
     Dosage: UNK
     Dates: start: 20131230
  3. LEXAPRO [Concomitant]
  4. PHENERGAN (PROMETHAZINE HYDROCHLORIDE) [Concomitant]

REACTIONS (4)
  - Device expulsion [Recovered/Resolved]
  - Device deployment issue [Unknown]
  - Implant site irritation [Recovered/Resolved]
  - Implant site erythema [Recovered/Resolved]
